FAERS Safety Report 4502477-X (Version None)
Quarter: 2004Q4

REPORT INFORMATION
  Report Type: 
  Country: None (occurrence: None)
  Receive Date: 20041110
  Receipt Date: 20041101
  Transmission Date: 20050328
  Serious: Yes (Hospitalization)
  Sender: FDA-Public Use
  Company Number: 2004-05-0771

PATIENT
  Age: 59 Year
  Sex: Female
  Weight: 50 kg

DRUGS (7)
  1. REBETOL [Suspect]
     Indication: HEPATITIS C
     Dosage: 800-400 MG ORAL
     Route: 048
     Dates: start: 20040226, end: 20040321
  2. REBETOL [Suspect]
     Indication: HEPATITIS C
     Dosage: 800-400 MG ORAL
     Route: 048
     Dates: start: 20040322, end: 20040513
  3. REBETOL [Suspect]
     Indication: HEPATITIS C
     Dosage: 800-400 MG ORAL
     Route: 048
     Dates: start: 20040226, end: 20040811
  4. REBETOL [Suspect]
     Indication: HEPATITIS C
     Dosage: 800-400 MG ORAL
     Route: 048
     Dates: start: 20040514, end: 20040811
  5. INTRON A [Suspect]
     Indication: HEPATITIS C
     Dosage: 6 MU QD-TIW INTRAMUSCULAR; 6 MU QD INTRAMUSCULAR
     Route: 030
     Dates: start: 20040226, end: 20040310
  6. INTRON A [Suspect]
     Indication: HEPATITIS C
     Dosage: 6 MU QD-TIW INTRAMUSCULAR; 6 MU QD INTRAMUSCULAR
     Route: 030
     Dates: start: 20040226, end: 20040811
  7. INTRON A [Suspect]
     Indication: HEPATITIS C
     Dosage: 6 MU QD-TIW INTRAMUSCULAR; 6 MU QD INTRAMUSCULAR
     Route: 030
     Dates: start: 20040312, end: 20040811

REACTIONS (8)
  - ABASIA [None]
  - ANOREXIA [None]
  - ARTHRALGIA [None]
  - BURSITIS [None]
  - JOINT SWELLING [None]
  - OEDEMA PERIPHERAL [None]
  - PAIN [None]
  - SYNOVITIS [None]
